FAERS Safety Report 6454423-X (Version None)
Quarter: 2009Q4

REPORT INFORMATION
  Report Type: 
  Country: None (occurrence: None)
  Receive Date: 20091124
  Receipt Date: 20091111
  Transmission Date: 20100525
  Serious: Yes (Other)
  Sender: FDA-Public Use
  Company Number: PHHY2009IT49382

PATIENT
  Age: 5 Year
  Sex: Male

DRUGS (6)
  1. CYCLOSPORINE [Suspect]
     Indication: STEM CELL TRANSPLANT
     Dosage: 7.7 MG/KG, UNK
  2. CYCLOSPORINE [Suspect]
     Indication: GRAFT VERSUS HOST DISEASE
  3. BUSULFAN [Concomitant]
     Route: 042
  4. CYCLOPHOSPHAMIDE [Concomitant]
  5. THYMOGLOBULIN [Concomitant]
     Dosage: 2.5 MG/KG, QD (TOTAL DOSE OF 7.5 MG/KG)
     Route: 042
  6. METHOTREXATE [Concomitant]
     Indication: GRAFT VERSUS HOST DISEASE
     Dosage: 10 MG/M2, UNK
     Route: 042

REACTIONS (3)
  - COMPLICATIONS OF BONE MARROW TRANSPLANT [None]
  - NEUTROPENIA [None]
  - TRANSPLANT REJECTION [None]
